FAERS Safety Report 9988101 (Version 1)
Quarter: 2014Q1

REPORT INFORMATION
  Report Type: Spontaneous
  Country: US (occurrence: US)
  Receive Date: 20140308
  Receipt Date: 20140308
  Transmission Date: 20141002
  Serious: No
  Sender: FDA-Public Use
  Company Number: US-009507513-1403USA000254

PATIENT
  Sex: Female

DRUGS (3)
  1. JANUMET [Suspect]
     Indication: TYPE 2 DIABETES MELLITUS
     Dosage: 0.5 DF, TID, HALF TABLET TAKEN 3 TIMES DAILY IN MORNING,NOON AND NIGHT
     Route: 048
     Dates: start: 2007
  2. GLIPIZIDE [Concomitant]
     Dosage: 10 MG, QD,DOSE INCREASED 3 TO 4 MONTHS AGO
     Dates: start: 201311
  3. GLIPIZIDE [Concomitant]
     Dosage: 5 MG, QD

REACTIONS (5)
  - Blood glucose increased [Not Recovered/Not Resolved]
  - Wrong technique in drug usage process [Unknown]
  - Inappropriate schedule of drug administration [Unknown]
  - Abdominal pain [Not Recovered/Not Resolved]
  - Drug ineffective [Not Recovered/Not Resolved]
